FAERS Safety Report 15832073 (Version 1)
Quarter: 2019Q1

REPORT INFORMATION
  Report Type: Report from Study
  Country: US (occurrence: US)
  Receive Date: 20190116
  Receipt Date: 20190116
  Transmission Date: 20190417
  Serious: Yes (Hospitalization, Other)
  Sender: FDA-Public Use
  Company Number: PHEH2019US001441

PATIENT
  Sex: Female

DRUGS (1)
  1. COSENTYX [Suspect]
     Active Substance: SECUKINUMAB
     Indication: PSORIASIS
     Dosage: 300 MG, AT WEEKS 0, 1, 2, 3, AND 4, THAN ONCE EVERY 4 WEEKS
     Route: 058

REACTIONS (2)
  - Arrhythmia [Unknown]
  - Cerebrovascular accident [Unknown]
